FAERS Safety Report 5512731-0 (Version None)
Quarter: 2007Q4

REPORT INFORMATION
  Report Type: 
  Country: None (occurrence: None)
  Receive Date: 20071112
  Receipt Date: 20071030
  Transmission Date: 20080405
  Serious: Yes (Hospitalization)
  Sender: FDA-Public Use
  Company Number: BR-ROCHE-529019

PATIENT
  Age: 20 Year
  Sex: Male

DRUGS (2)
  1. ROACUTAN [Suspect]
     Indication: ACNE
     Route: 048
     Dates: start: 20070901
  2. ARCOXIA [Concomitant]
     Dates: start: 20071027, end: 20071029

REACTIONS (2)
  - MYOCARDITIS [None]
  - PERICARDITIS [None]
